FAERS Safety Report 19005539 (Version 1)
Quarter: 2021Q1

REPORT INFORMATION
  Report Type: Spontaneous
  Country: FR (occurrence: FR)
  Receive Date: 20210313
  Receipt Date: 20210313
  Transmission Date: 20210420
  Serious: Yes (Hospitalization)
  Sender: FDA-Public Use
  Company Number: NVSC2021FR050193

PATIENT
  Age: 70 Year
  Sex: Male

DRUGS (2)
  1. LEVOFLOXACIN. [Suspect]
     Active Substance: LEVOFLOXACIN
     Indication: SKIN ULCER
     Dosage: 750 MG, QD
     Route: 048
     Dates: start: 20201203, end: 20201208
  2. BACTRIM [Suspect]
     Active Substance: SULFAMETHOXAZOLE\TRIMETHOPRIM
     Indication: SKIN ULCER
     Dosage: 1 DF, 8QD
     Route: 048
     Dates: start: 20201203, end: 20201210

REACTIONS (2)
  - Hepatocellular injury [Recovered/Resolved]
  - Cholestasis [Not Recovered/Not Resolved]

NARRATIVE: CASE EVENT DATE: 20201208
